FAERS Safety Report 16997739 (Version 11)
Quarter: 2021Q1

REPORT INFORMATION
  Report Type: Spontaneous
  Country: US (occurrence: US)
  Receive Date: 20191106
  Receipt Date: 20210115
  Transmission Date: 20210419
  Serious: No
  Sender: FDA-Public Use
  Company Number: US-TEVA-2019-US-1131628

PATIENT
  Age: 48 Year
  Sex: Male

DRUGS (3)
  1. SYNRIBO [Suspect]
     Active Substance: OMACETAXINE MEPESUCCINATE
     Indication: CHRONIC MYELOID LEUKAEMIA
     Dosage: .3429 MILLIGRAM DAILY; DOSE: 2.4MG/0.69ML; BID FOR 7 DAYS/28 DAY CYCLE
     Route: 065
     Dates: start: 20191025
  2. SYNRIBO [Suspect]
     Active Substance: OMACETAXINE MEPESUCCINATE
     Dosage: 1.2 MILLIGRAM DAILY; BID X7DAYS OF 28 DAYS CYCLE
     Route: 058
  3. SYNRIBO [Suspect]
     Active Substance: OMACETAXINE MEPESUCCINATE
     Dosage: FORM OF ADMIN: VIAL, DOSAGE: 1.9MG/0.43ML, FREQUENCY: BID X5DAYS/28 DAY CYCLE?2.4MG/0.68ML, FREQUENC
     Route: 065
     Dates: start: 20191122

REACTIONS (17)
  - Fatigue [Unknown]
  - Dry mouth [Unknown]
  - Pain in extremity [Unknown]
  - Gingival bleeding [Unknown]
  - Peripheral swelling [Not Recovered/Not Resolved]
  - Asthenia [Unknown]
  - Platelet count decreased [Unknown]
  - Arthralgia [Not Recovered/Not Resolved]
  - Rash [Unknown]
  - Dyspepsia [Unknown]
  - Increased appetite [Unknown]
  - Nausea [Unknown]
  - Depressed mood [Unknown]
  - Headache [Not Recovered/Not Resolved]
  - Gingival pain [Unknown]
  - Toothache [Unknown]
  - Constipation [Unknown]

NARRATIVE: CASE EVENT DATE: 20191025
